FAERS Safety Report 4856142-X (Version None)
Quarter: 2005Q4

REPORT INFORMATION
  Report Type: 
  Country: None (occurrence: None)
  Receive Date: 20051216
  Receipt Date: 20051005
  Transmission Date: 20060501
  Serious: Yes (Hospitalization, Disabling)
  Sender: FDA-Public Use
  Company Number: US-MERCK-0510USA04563

PATIENT
  Age: 62 Year
  Sex: Female
  Weight: 98 kg

DRUGS (5)
  1. LASIX [Concomitant]
     Route: 065
  2. VIOXX [Suspect]
     Indication: ARTHRITIS
     Route: 048
     Dates: start: 20020101, end: 20040101
  3. NASONEX [Concomitant]
     Route: 065
  4. GLUCOTROL [Concomitant]
     Route: 065
  5. DIGOXIN [Concomitant]
     Route: 065

REACTIONS (1)
  - CARDIAC FAILURE CONGESTIVE [None]
